FAERS Safety Report 8056090-0 (Version None)
Quarter: 2012Q1

REPORT INFORMATION
  Report Type: 
  Country: None (occurrence: None)
  Receive Date: 20120119
  Receipt Date: 20120110
  Transmission Date: 20120608
  Serious: Yes (Hospitalization)
  Sender: FDA-Public Use
  Company Number: US-JNJFOC-20110100912

PATIENT
  Age: 30 Year
  Sex: Female
  Weight: 129 kg

DRUGS (4)
  1. ACETAMINOPHEN [Suspect]
     Route: 048
  2. EFFEXOR [Concomitant]
     Indication: DEPRESSION
  3. DARVOCET [Suspect]
     Indication: DENTAL DISCOMFORT
  4. ACETAMINOPHEN [Suspect]
     Indication: DENTAL DISCOMFORT
     Route: 048
     Dates: start: 20101217

REACTIONS (4)
  - ABDOMINAL PAIN [None]
  - DRUG ADMINISTRATION ERROR [None]
  - MULTIPLE DRUG OVERDOSE ACCIDENTAL [None]
  - VOMITING [None]
